FAERS Safety Report 16169704 (Version 1)
Quarter: 2019Q2

REPORT INFORMATION
  Report Type: Report from Study
  Country: US (occurrence: US)
  Receive Date: 20190408
  Receipt Date: 20190408
  Transmission Date: 20190711
  Serious: No
  Sender: FDA-Public Use
  Company Number: PHHY2019GB061683

PATIENT
  Age: 46 Year
  Sex: Female

DRUGS (2)
  1. COSENTYX [Interacting]
     Active Substance: SECUKINUMAB
     Indication: PSORIATIC ARTHROPATHY
  2. COSENTYX [Suspect]
     Active Substance: SECUKINUMAB
     Indication: PSORIASIS
     Dosage: 300 MG, (ONCE EVERY 4 WEEKS)
     Route: 058

REACTIONS (3)
  - Ill-defined disorder [Recovering/Resolving]
  - Urinary tract infection [Recovering/Resolving]
  - Vitamin D decreased [Recovering/Resolving]
